FAERS Safety Report 9667827 (Version 2)
Quarter: 2014Q2

REPORT INFORMATION
  Report Type: Spontaneous
  Country: US (occurrence: None)
  Receive Date: 20131101
  Receipt Date: 20140407
  Transmission Date: 20141212
  Serious: Yes (Other)
  Sender: FDA-Public Use
  Company Number: 2013-US-002298

PATIENT
  Age: 60 Year
  Sex: Female

DRUGS (1)
  1. XYREM [Suspect]
     Indication: NARCOLEPSY
     Route: 048
     Dates: start: 201303, end: 201309

REACTIONS (5)
  - Elbow operation [None]
  - Carpal tunnel decompression [None]
  - Carpal tunnel syndrome [None]
  - Cubital tunnel syndrome [None]
  - Peripheral nerve decompression [None]
